FAERS Safety Report 8564106-8 (Version None)
Quarter: 2012Q3

REPORT INFORMATION
  Report Type: 
  Country: None (occurrence: None)
  Receive Date: 20120803
  Receipt Date: 20120726
  Transmission Date: 20120928
  Serious: Yes (Death)
  Sender: FDA-Public Use
  Company Number: JP-BAYER-2012-041123

PATIENT
  Age: 68 Year
  Sex: Female
  Weight: 45.805 kg

DRUGS (3)
  1. NEXAVAR [Suspect]
     Indication: HEPATIC NEOPLASM MALIGNANT
     Dosage: 200 MG, BID
     Route: 048
     Dates: start: 20120312, end: 20120326
  2. KERATINAMIN [Concomitant]
     Indication: PALMAR-PLANTAR ERYTHRODYSAESTHESIA SYNDROME
     Dosage: UNK
     Route: 061
     Dates: start: 20120308, end: 20120326
  3. CISPLATIN [Concomitant]
     Dosage: UNK
     Route: 042
     Dates: start: 20120201, end: 20120201

REACTIONS (2)
  - HEPATORENAL SYNDROME [None]
  - HEPATIC FUNCTION ABNORMAL [None]
